FAERS Safety Report 18864401 (Version 1)
Quarter: 2021Q1

REPORT INFORMATION
  Report Type: Spontaneous
  Country: US (occurrence: US)
  Receive Date: 20210208
  Receipt Date: 20210208
  Transmission Date: 20210420
  Serious: Yes (Hospitalization)
  Sender: FDA-Public Use
  Company Number: None

PATIENT
  Age: 73 Year
  Sex: Male
  Weight: 85 kg

DRUGS (16)
  1. METHYLPREDNISOLONE IV [Concomitant]
     Active Substance: METHYLPREDNISOLONE
     Dates: start: 20201206, end: 20201209
  2. ACTEMRA [Suspect]
     Active Substance: TOCILIZUMAB
     Indication: COVID-19
     Dosage: ?          OTHER FREQUENCY:ONCE;?
     Route: 042
     Dates: start: 20201126, end: 20201126
  3. MULTIVITAMIN [Concomitant]
     Active Substance: VITAMINS
     Dates: start: 20201130, end: 20201215
  4. PANTOPRAZOLE [Concomitant]
     Active Substance: PANTOPRAZOLE
     Dates: start: 20201123, end: 20201223
  5. PREDNISONE. [Concomitant]
     Active Substance: PREDNISONE
     Dates: start: 20201209, end: 20201213
  6. ZINC SULFATE. [Concomitant]
     Active Substance: ZINC SULFATE
     Dates: start: 20201123, end: 20201130
  7. GUAIFENESIN. [Concomitant]
     Active Substance: GUAIFENESIN
     Dates: start: 20201129, end: 20201223
  8. CEFTRIAXONE. [Concomitant]
     Active Substance: CEFTRIAXONE
     Dates: start: 20201123, end: 20201125
  9. TAMSULOSIN [Concomitant]
     Active Substance: TAMSULOSIN
     Dates: start: 20201124, end: 20201219
  10. HEPARIN SQ [Concomitant]
     Dates: start: 20201123, end: 20201213
  11. ALLOPURINOL. [Concomitant]
     Active Substance: ALLOPURINOL
     Dates: start: 20201124, end: 20201219
  12. ASCORBIC ACID. [Concomitant]
     Active Substance: ASCORBIC ACID
     Dates: start: 20201123, end: 20201215
  13. CHOLECALCIFEROL [Concomitant]
     Active Substance: CHOLECALCIFEROL
     Dates: start: 20201123, end: 20201223
  14. PRAVASTATIN. [Concomitant]
     Active Substance: PRAVASTATIN
     Dates: start: 20201123, end: 20201219
  15. DEXAMETHASONE IV [Concomitant]
     Active Substance: DEXAMETHASONE
     Dates: start: 20201123, end: 20201205
  16. REMDESIVIR. [Concomitant]
     Active Substance: REMDESIVIR
     Dates: start: 20201124, end: 20201204

REACTIONS (3)
  - Colectomy [None]
  - Diverticulitis [None]
  - Abscess intestinal [None]

NARRATIVE: CASE EVENT DATE: 20201210
